FAERS Safety Report 8088894-2 (Version None)
Quarter: 2012Q1

REPORT INFORMATION
  Report Type: 
  Country: None (occurrence: None)
  Receive Date: 20120128
  Receipt Date: 20110413
  Transmission Date: 20120608
  Serious: No
  Sender: FDA-Public Use
  Company Number: US-ABBOTT-11P-163-0718795-00

PATIENT
  Age: 77 Year
  Sex: Male

DRUGS (12)
  1. VYTORIN [Concomitant]
     Indication: BLOOD CHOLESTEROL INCREASED
     Dosage: 10/20MG 5X WEEKLY
  2. CALCIUM [Concomitant]
     Indication: MINERAL SUPPLEMENTATION
  3. HUMIRA [Suspect]
     Indication: PSORIASIS
     Dates: start: 20090101, end: 20110117
  4. LISINOPRIL [Concomitant]
     Indication: HYPERTENSION
  5. BENADRYL [Concomitant]
     Indication: HYPERSENSITIVITY
     Dosage: AS NEEDED
  6. NASAL SPRAY [Concomitant]
     Indication: NASAL DECONGESTION THERAPY
  7. ASPIRIN [Concomitant]
     Indication: PRODUCT USED FOR UNKNOWN INDICATION
     Dosage: 3-4X WEEKLY
  8. METOPROLOL TARTRATE [Concomitant]
     Indication: HYPERTENSION
  9. FLOMAX [Concomitant]
     Indication: URINARY TRACT DISORDER
  10. HUMIRA [Suspect]
     Dates: start: 20110402
  11. PROTOPIC [Concomitant]
     Indication: PSORIASIS
     Dosage: AS NEEDED
  12. STEROIDS [Concomitant]
     Indication: PRODUCT USED FOR UNKNOWN INDICATION

REACTIONS (7)
  - RASH PRURITIC [None]
  - COUGH [None]
  - NASOPHARYNGITIS [None]
  - INJECTION SITE RASH [None]
  - INCREASED UPPER AIRWAY SECRETION [None]
  - FATIGUE [None]
  - PAIN [None]
